APPROVED DRUG PRODUCT: AMOXICILLIN
Active Ingredient: AMOXICILLIN
Strength: 125MG
Dosage Form/Route: TABLET, CHEWABLE;ORAL
Application: A205274 | Product #001
Applicant: HIKMA PHARMACEUTICALS LLC
Approved: Jun 25, 2020 | RLD: No | RS: No | Type: DISCN